FAERS Safety Report 6146795-0 (Version None)
Quarter: 2009Q2

REPORT INFORMATION
  Report Type: 
  Country: None (occurrence: None)
  Receive Date: 20090407
  Receipt Date: 20090330
  Transmission Date: 20091009
  Serious: Yes (Life-Threatening)
  Sender: FDA-Public Use
  Company Number: JP-SANOFI-SYNTHELABO-A01200903709

PATIENT
  Age: 41 Year
  Sex: Male

DRUGS (5)
  1. AVASTIN [Concomitant]
     Dosage: UNK
     Route: 042
     Dates: start: 20090218, end: 20090218
  2. FLUOROURACIL [Concomitant]
     Dosage: BOLUS THEN CONTINUOUS INFUSION UNK
     Route: 040
     Dates: start: 20080701, end: 20090218
  3. FLUOROURACIL [Concomitant]
     Dosage: UNK
     Route: 041
     Dates: start: 20080701, end: 20090218
  4. LEVOFOLINATE [Suspect]
     Route: 042
     Dates: start: 20090218, end: 20090218
  5. ELPLAT [Suspect]
     Route: 042
     Dates: start: 20090218, end: 20090218

REACTIONS (1)
  - INTESTINAL PERFORATION [None]
